FAERS Safety Report 23983449 (Version 1)
Quarter: 2024Q2

REPORT INFORMATION
  Report Type: Report from Study
  Country: US (occurrence: US)
  Receive Date: 20240617
  Receipt Date: 20240617
  Transmission Date: 20240716
  Serious: Yes (Death)
  Sender: FDA-Public Use
  Company Number: US-ABBVIE-5803970

PATIENT
  Sex: Female

DRUGS (2)
  1. SYNTHROID [Suspect]
     Active Substance: LEVOTHYROXINE SODIUM
     Indication: Product used for unknown indication
     Dosage: FORM STRENGTH: 200 MILLIGRAM,?FREQUENCY TEXT: DAILY,?DOSE/ FREQUENCY: 200 MCG TAKE 1 TAB DAILY MO...
     Route: 048
  2. SYNTHROID [Suspect]
     Active Substance: LEVOTHYROXINE SODIUM
     Indication: Product used for unknown indication
     Dosage: FORM STRENGTH: 200 MILLIGRAM,?FREQUENCY TEXT: ON SUNDAY,?2 TABS ON SUNDAY
     Route: 048

REACTIONS (1)
  - Neoplasm malignant [Fatal]
